FAERS Safety Report 8856282 (Version 1)
Quarter: 2012Q4

REPORT INFORMATION
  Report Type: Spontaneous
  Country: US (occurrence: None)
  Receive Date: 20121019
  Receipt Date: 20121019
  Transmission Date: 20130627
  Serious: Yes (Other)
  Sender: FDA-Public Use
  Company Number: TPA2012A07573

PATIENT
  Age: 69 Year
  Sex: Male
  Weight: 93.44 kg

DRUGS (12)
  1. ACTOPLUS MET [Suspect]
     Route: 048
     Dates: start: 2009, end: 201209
  2. ACTOS (PIOGLITAZONE HYDROCHLORIDE) [Suspect]
     Route: 048
     Dates: start: 2004, end: 2009
  3. JANUVIA (SITAGLIPTIN PHOSPHATE) [Concomitant]
  4. GLIMEPIRIDE (GLIMEPIRIDE) [Concomitant]
  5. COUMADIN (WARFARIN SODIUM) [Concomitant]
  6. LIPITOR (ATORVASTATIN CALCIUM) [Concomitant]
  7. LOSARTAN (LOSARTAN) [Concomitant]
  8. TOPRAL XL (METOPROLOL SUCCINATE) [Concomitant]
  9. SYNTHROID (LEVOTHYROXINE SODIUM) [Concomitant]
  10. LEVOTHYROXINE (LEVOTHYROXINE) [Concomitant]
  11. AMARYL (GLIMEPIRIDE) [Concomitant]
  12. METFORMIN (METFORMIN) (SUSTAINED-RELEASE TABLET) [Concomitant]

REACTIONS (1)
  - Bladder cancer [None]
